FAERS Safety Report 5038116-1 (Version None)
Quarter: 2006Q2

REPORT INFORMATION
  Report Type: 
  Country: None (occurrence: None)
  Receive Date: 20060602
  Receipt Date: 20060424
  Transmission Date: 20061013
  Serious: Yes (Other)
  Sender: FDA-Public Use
  Company Number: 2006-0009341

PATIENT
  Age: 41 Year
  Sex: Female
  Weight: 116.1208 kg

DRUGS (4)
  1. TRUVADA [Suspect]
     Indication: HIV INFECTION
     Dosage: SEE IMAGE
     Route: 048
     Dates: start: 20060104, end: 20060330
  2. TRUVADA [Suspect]
     Indication: HIV INFECTION
     Dosage: SEE IMAGE
     Route: 048
     Dates: start: 20060331
  3. SUSTIVA [Suspect]
     Indication: HIV INFECTION
     Dosage: SEE IMAGE
     Route: 048
     Dates: start: 20060104, end: 20060330
  4. SUSTIVA [Suspect]
     Indication: HIV INFECTION
     Dosage: SEE IMAGE
     Route: 048
     Dates: start: 20060331

REACTIONS (1)
  - NEPHROPATHY TOXIC [None]
